FAERS Safety Report 24392732 (Version 2)
Quarter: 2024Q4

REPORT INFORMATION
  Report Type: Report from Study
  Country: US (occurrence: US)
  Receive Date: 20241003
  Receipt Date: 20241209
  Transmission Date: 20250114
  Serious: No
  Sender: MERCK
  Company Number: US-009507513-2409USA010300

PATIENT
  Sex: Female

DRUGS (3)
  1. SOTATERCEPT [Suspect]
     Active Substance: SOTATERCEPT
     Indication: Pulmonary arterial hypertension
     Dosage: INJECT 0.4 ML UNDER THE SKIN FOR 1 DOSE, THEN INCREASE TO 1 ML FOR TARGET DOSE. EACH DOSE SHOULD BE
     Route: 058
     Dates: start: 202409
  2. TREPROSTINIL SODIUM [Suspect]
     Active Substance: TREPROSTINIL SODIUM
     Indication: Pulmonary arterial hypertension
     Dosage: 0.024 MICROGRAM PER KILOGRAM
     Route: 058
     Dates: start: 202401
  3. TREPROSTINIL SODIUM [Suspect]
     Active Substance: TREPROSTINIL SODIUM
     Dosage: 0.024 MICROGRAM PER KILOGRAM
     Route: 058
     Dates: start: 2024

REACTIONS (8)
  - Headache [Unknown]
  - Blood test abnormal [Unknown]
  - Dyspnoea exertional [Unknown]
  - Oedema peripheral [Unknown]
  - Anxiety [Unknown]
  - Fatigue [Unknown]
  - Epistaxis [Unknown]
  - Gingival bleeding [Unknown]

NARRATIVE: CASE EVENT DATE: 20240101
